FAERS Safety Report 4681043-X (Version None)
Quarter: 2005Q2

REPORT INFORMATION
  Report Type: 
  Country: None (occurrence: None)
  Receive Date: 20050601
  Receipt Date: 20050601
  Transmission Date: 20051028
  Serious: Yes (Disabling)
  Sender: FDA-Public Use
  Company Number: None

PATIENT
  Age: 53 Year
  Sex: Male
  Weight: 106.5953 kg

DRUGS (4)
  1. VIAGRA [Suspect]
     Indication: ERECTILE DYSFUNCTION
     Dosage: AS NEEDED
  2. LIPITOR [Concomitant]
  3. ASPIRIN [Concomitant]
  4. VITAMINS AND MINERALS [Concomitant]

REACTIONS (2)
  - OPTIC NEURITIS [None]
  - VISUAL ACUITY REDUCED [None]
